FAERS Safety Report 4452356-1 (Version None)
Quarter: 2004Q3

REPORT INFORMATION
  Report Type: 
  Country: None (occurrence: None)
  Receive Date: 20040916
  Receipt Date: 20040907
  Transmission Date: 20050211
  Serious: No
  Sender: FDA-Public Use
  Company Number: 2004SE04993

PATIENT
  Age: 70 Year
  Sex: Male
  Weight: 57 kg

DRUGS (3)
  1. BLOPRESS [Suspect]
     Indication: HYPERTENSION
     Dosage: 4 MG   PO
     Route: 048
     Dates: start: 20030404
  2. INSULINS AND ANALOGUES [Concomitant]
  3. ALPHA GLUCOSIDASE INHIBITORS [Concomitant]

REACTIONS (1)
  - HYPOGLYCAEMIA [None]
